FAERS Safety Report 7386629-X (Version None)
Quarter: 2011Q1

REPORT INFORMATION
  Report Type: 
  Country: None (occurrence: None)
  Receive Date: 20110331
  Receipt Date: 20110328
  Transmission Date: 20110831
  Serious: Yes (Life-Threatening)
  Sender: FDA-Public Use
  Company Number: US-ASTRAZENECA-2011SE17480

PATIENT
  Age: 54 Year
  Sex: Male

DRUGS (2)
  1. SEROQUEL XR [Suspect]
     Route: 048
     Dates: start: 20110301
  2. CYMBALTA [Suspect]
     Route: 065
     Dates: start: 20110301

REACTIONS (2)
  - OVERDOSE [None]
  - SUICIDE ATTEMPT [None]
